FAERS Safety Report 5224111-6 (Version None)
Quarter: 2007Q1

REPORT INFORMATION
  Report Type: 
  Country: None (occurrence: None)
  Receive Date: 20070126
  Receipt Date: 20070112
  Transmission Date: 20070707
  Serious: Yes (Disabling)
  Sender: FDA-Public Use
  Company Number: 15542

PATIENT
  Age: 7 Year
  Sex: Male

DRUGS (1)
  1. METHOTREXATE [Suspect]
     Indication: ACUTE LYMPHOCYTIC LEUKAEMIA

REACTIONS (19)
  - AREFLEXIA [None]
  - ARTHRALGIA [None]
  - BONE MARROW DISORDER [None]
  - CENTRAL NERVOUS SYSTEM LESION [None]
  - DIPLEGIA [None]
  - DISEASE RECURRENCE [None]
  - HYPOTONIA [None]
  - ILL-DEFINED DISORDER [None]
  - MENINGISM [None]
  - MICTURITION DISORDER [None]
  - MONOPARESIS [None]
  - MOTOR DYSFUNCTION [None]
  - MUSCULAR WEAKNESS [None]
  - NO THERAPEUTIC RESPONSE [None]
  - PARAPLEGIA [None]
  - PYREXIA [None]
  - RESIDUAL URINE VOLUME [None]
  - SENSORY DISTURBANCE [None]
  - WHEELCHAIR USER [None]
